FAERS Safety Report 8619242-4 (Version None)
Quarter: 2012Q3

REPORT INFORMATION
  Report Type: 
  Country: None (occurrence: None)
  Receive Date: 20120824
  Receipt Date: 20120814
  Transmission Date: 20120928
  Serious: Yes (Hospitalization)
  Sender: FDA-Public Use
  Company Number: US-EISAI INC-E7389-02874-CLI-US

PATIENT
  Sex: Female
  Weight: 94 kg

DRUGS (13)
  1. NEURONTIN [Concomitant]
     Route: 048
  2. VYTORIN [Concomitant]
     Dosage: 1 - 2 MG
     Route: 048
     Dates: end: 20120601
  3. EPIRUBICIN HYDROCHLORIDE [Suspect]
     Indication: BREAST CANCER
     Route: 041
     Dates: start: 20120607, end: 20120601
  4. EPIRUBICIN HYDROCHLORIDE [Suspect]
     Dosage: REDCUED DOSE
     Route: 041
     Dates: start: 20120705
  5. CYCLOBENZAPRINE HCL [Concomitant]
     Dosage: 1 - 2 MG
     Route: 048
     Dates: end: 20120601
  6. DIOVAN HCT [Concomitant]
     Dosage: 1 - 2 MG
     Route: 048
     Dates: end: 20120601
  7. CAPECITABINE [Suspect]
     Indication: BREAST CANCER
     Route: 048
     Dates: start: 20120607, end: 20120618
  8. KLONOPIN [Concomitant]
     Dosage: 1 - 2 MG
     Route: 048
  9. CAPECITABINE [Suspect]
     Dosage: REDUCED DOSE
     Route: 048
     Dates: start: 20120705
  10. NOVOLOG MIX 70/30 [Concomitant]
     Dosage: 1 - 2 MG
     Route: 058
  11. SKELAXIN [Concomitant]
     Dosage: 1 - 2 MG
     Route: 048
     Dates: end: 20120601
  12. NORCO [Concomitant]
     Dosage: 1 - 2 MG
     Route: 048
  13. NOVOLOG [Concomitant]
     Dosage: 1 - 2 MG
     Route: 058

REACTIONS (3)
  - MENTAL STATUS CHANGES [None]
  - RENAL FAILURE ACUTE [None]
  - ABDOMINAL PAIN [None]
